FAERS Safety Report 23895701 (Version 3)
Quarter: 2025Q4

REPORT INFORMATION
  Report Type: Report from Study
  Country: US (occurrence: None)
  Receive Date: 20240524
  Receipt Date: 20251018
  Transmission Date: 20260118
  Serious: Yes (Hospitalization, Other)
  Sender: UCB
  Company Number: US-UCBSA-2024003929

PATIENT
  Age: 26 Year
  Weight: 72.109 kg

DRUGS (5)
  1. FENFLURAMINE [Suspect]
     Active Substance: FENFLURAMINE
     Indication: Severe myoclonic epilepsy of infancy
     Dosage: 6 MILLILITER, 2X/DAY (BID)
  2. FENFLURAMINE [Suspect]
     Active Substance: FENFLURAMINE
     Dosage: 8 MILLILITER, 2X/DAY (BID)
  3. LACOSAMIDE [Concomitant]
     Active Substance: LACOSAMIDE
     Indication: Severe myoclonic epilepsy of infancy
     Dosage: 300 MILLIGRAM, 2X/DAY (BID)
  4. epidolex [Concomitant]
     Indication: Severe myoclonic epilepsy of infancy
     Dosage: 10 M/G, SOLUTION
  5. ONFI [Concomitant]
     Active Substance: CLOBAZAM
     Indication: Product used for unknown indication
     Dosage: 40 MILLIGRAM, 2X/DAY (BID)

REACTIONS (6)
  - Tibia fracture [Recovering/Resolving]
  - Internal fixation of fracture [Recovering/Resolving]
  - Fibula fracture [Recovering/Resolving]
  - Seizure [Not Recovered/Not Resolved]
  - Off label use [Unknown]
  - Overdose [Unknown]
